FAERS Safety Report 24668701 (Version 2)
Quarter: 2025Q3

REPORT INFORMATION
  Report Type: Spontaneous
  Country: EU (occurrence: EU)
  Receive Date: 20241127
  Receipt Date: 20250809
  Transmission Date: 20251021
  Serious: Yes (Death, Hospitalization, Other)
  Sender: ALEXION PHARMACEUTICALS
  Company Number: None

PATIENT
  Age: 76 Year
  Sex: Female
  Weight: 50 kg

DRUGS (2)
  1. DURVALUMAB [Suspect]
     Active Substance: DURVALUMAB
     Indication: Hepatocellular carcinoma
     Dates: start: 20240201, end: 20240301
  2. LENVATINIB [Suspect]
     Active Substance: LENVATINIB
     Indication: Hepatocellular carcinoma
     Dates: start: 20240201, end: 20240301

REACTIONS (2)
  - Toxic skin eruption [Recovered/Resolved]
  - Drug eruption [Fatal]

NARRATIVE: CASE EVENT DATE: 20240206
